FAERS Safety Report 7325723-6 (Version None)
Quarter: 2011Q1

REPORT INFORMATION
  Report Type: 
  Country: None (occurrence: None)
  Receive Date: 20110214
  Receipt Date: 20110128
  Transmission Date: 20110831
  Serious: Yes (Hospitalization)
  Sender: FDA-Public Use
  Company Number: M2011-004

PATIENT
  Age: 48 Year
  Sex: Female

DRUGS (1)
  1. ALLERGENIC EXTRACT [Suspect]
     Dosage: 0.5ML, BI-WEEKLY, INJECTION
     Dates: start: 20100707

REACTIONS (4)
  - CHEST DISCOMFORT [None]
  - INJECTION SITE PRURITUS [None]
  - DYSPNOEA [None]
  - SWELLING FACE [None]
